FAERS Safety Report 5454030-1 (Version None)
Quarter: 2007Q3

REPORT INFORMATION
  Report Type: 
  Country: None (occurrence: None)
  Receive Date: 20070917
  Receipt Date: 20070531
  Transmission Date: 20080115
  Serious: Yes (Hospitalization, Other)
  Sender: FDA-Public Use
  Company Number: US-ASTRAZENECA-2006UW06084

PATIENT
  Age: 9200 Day
  Sex: Male
  Weight: 170.5 kg

DRUGS (6)
  1. SEROQUEL [Suspect]
     Indication: DEPRESSION
     Dosage: 25MG-100MG
     Route: 048
     Dates: start: 20040502, end: 20041208
  2. SEROQUEL [Suspect]
     Indication: ANXIETY
     Dosage: 25MG-100MG
     Route: 048
     Dates: start: 20040502, end: 20041208
  3. SEROQUEL [Suspect]
     Indication: SLEEP DISORDER
     Dosage: 25MG-100MG
     Route: 048
     Dates: start: 20040502, end: 20041208
  4. GEODON [Concomitant]
     Dates: start: 20060101
  5. RISPERDAL [Concomitant]
     Dosage: 1MG-3MG
     Dates: start: 20051013
  6. REMERON [Concomitant]
     Dates: start: 20030110

REACTIONS (3)
  - DIABETES MELLITUS [None]
  - DRUG INEFFECTIVE [None]
  - PANCREATITIS [None]
